FAERS Safety Report 15413669 (Version 1)
Quarter: 2018Q3

REPORT INFORMATION
  Report Type: Spontaneous
  Country: US (occurrence: US)
  Receive Date: 20180921
  Receipt Date: 20180921
  Transmission Date: 20181010
  Serious: No
  Sender: FDA-Public Use
  Company Number: US-ARRAY-2018-04317

PATIENT

DRUGS (2)
  1. MEKTOVI [Suspect]
     Active Substance: BINIMETINIB
     Indication: HEAD AND NECK CANCER
     Dosage: 45 MG, BID
     Route: 048
     Dates: start: 20180716
  2. BRAFTOVI [Suspect]
     Active Substance: ENCORAFENIB
     Indication: HEAD AND NECK CANCER
     Dosage: 450 MG, QD
     Route: 048
     Dates: start: 20180716

REACTIONS (1)
  - Visual impairment [Recovered/Resolved]
